FAERS Safety Report 7767941-9 (Version None)
Quarter: 2011Q3

REPORT INFORMATION
  Report Type: 
  Country: None (occurrence: None)
  Receive Date: 20110922
  Receipt Date: 20101221
  Transmission Date: 20111222
  Serious: Yes (Other)
  Sender: FDA-Public Use
  Company Number: US-ASTRAZENECA-2009UW04006

PATIENT
  Age: 26 Year
  Sex: Female
  Weight: 124.7 kg

DRUGS (28)
  1. SEROQUEL [Suspect]
     Dosage: 25 MG TO 400 MG
     Route: 048
     Dates: start: 20030623
  2. ABILIFY [Concomitant]
     Dates: start: 20080307, end: 20080411
  3. GEODON [Concomitant]
     Dates: start: 20060330
  4. TRIVORA-21 [Concomitant]
     Dosage: ONE TABLET PO DAILY
     Route: 048
     Dates: start: 20030612
  5. BUPROPION HCL [Concomitant]
     Dates: start: 20061018
  6. LODINE [Concomitant]
     Dates: start: 20061018
  7. SEROQUEL [Suspect]
     Dosage: 25 MG TO 400 MG
     Route: 048
     Dates: start: 20030623
  8. MAXZIDE [Concomitant]
     Dates: start: 20051208
  9. CLARITIN [Concomitant]
     Dates: start: 20061018
  10. SEROQUEL [Suspect]
     Indication: DEPRESSION
     Route: 048
     Dates: start: 20030201, end: 20060101
  11. CELEXA [Concomitant]
     Dates: start: 20020307
  12. INVEGA [Concomitant]
     Dates: start: 20070901
  13. ZOLOFT [Concomitant]
     Dates: start: 20020913, end: 20050204
  14. NAPROXEN [Concomitant]
     Route: 048
     Dates: start: 20060125
  15. RISPERDAL [Concomitant]
     Dates: start: 20070706, end: 20070901
  16. VIOXX [Concomitant]
     Dosage: PRN
     Dates: start: 20020307
  17. IBUPROFEN [Concomitant]
     Dosage: PRN
     Dates: start: 20020307
  18. SEROQUEL [Suspect]
     Indication: BIPOLAR DISORDER
     Route: 048
     Dates: start: 20030201, end: 20060101
  19. SEROQUEL [Suspect]
     Indication: ANXIETY
     Route: 048
     Dates: start: 20030201, end: 20060101
  20. SEROQUEL [Suspect]
     Indication: POST-TRAUMATIC STRESS DISORDER
     Route: 048
     Dates: start: 20030201, end: 20060101
  21. SEROQUEL [Suspect]
     Indication: AFFECTIVE DISORDER
     Route: 048
     Dates: start: 20030201, end: 20060101
  22. SEROQUEL [Suspect]
     Dosage: 25 MG TO 400 MG
     Route: 048
     Dates: start: 20030623
  23. CELEXA [Concomitant]
     Dates: start: 20010101
  24. PROZAC [Concomitant]
  25. SEROQUEL [Suspect]
     Dosage: 25 MG TO 400 MG
     Route: 048
     Dates: start: 20030623
  26. SEROQUEL [Suspect]
     Dosage: 25 MG TO 400 MG
     Route: 048
     Dates: start: 20030623
  27. ZOLOFT [Concomitant]
     Dosage: 100 MG TWO TABLETS PO QAM, 200 MG DAILY
     Route: 048
     Dates: start: 20030206
  28. EFFEXOR XR [Concomitant]
     Dosage: 150 MG TWO TIMES, 300 MG DAILY
     Route: 048
     Dates: start: 20030623

REACTIONS (8)
  - OBESITY [None]
  - TYPE 2 DIABETES MELLITUS [None]
  - ARTHRITIS [None]
  - SUICIDAL IDEATION [None]
  - WEIGHT INCREASED [None]
  - HYPERTENSION [None]
  - DEHYDRATION [None]
  - BLOOD CHOLESTEROL INCREASED [None]
